FAERS Safety Report 6263045-5 (Version None)
Quarter: 2009Q3

REPORT INFORMATION
  Report Type: 
  Country: None (occurrence: None)
  Receive Date: 20090708
  Receipt Date: 20090708
  Transmission Date: 20100115
  Serious: Yes (Hospitalization)
  Sender: FDA-Public Use
  Company Number: None

PATIENT
  Sex: Male
  Weight: 69 kg

DRUGS (2)
  1. FLUDARABINE PHOSPHATE [Suspect]
     Indication: ACUTE MYELOID LEUKAEMIA
     Dosage: 75 MG 5 DAYS IV
     Route: 042
     Dates: start: 20090317, end: 20090321
  2. CYCLOPHOSPHAMIDE [Suspect]
     Indication: ACUTE MYELOID LEUKAEMIA
     Dosage: 2140 MG 2 DAYS IV
     Route: 042
     Dates: start: 20090322, end: 20090323

REACTIONS (4)
  - CHILLS [None]
  - CLOSTRIDIAL INFECTION [None]
  - KLEBSIELLA INFECTION [None]
  - TACHYCARDIA [None]
